FAERS Safety Report 7164803-5 (Version None)
Quarter: 2010Q4

REPORT INFORMATION
  Report Type: 
  Country: None (occurrence: None)
  Receive Date: 20101215
  Receipt Date: 20101210
  Transmission Date: 20110411
  Serious: Yes (Other)
  Sender: FDA-Public Use
  Company Number: US-GILEAD-2010-0033044

PATIENT
  Sex: Male
  Weight: 71.9 kg

DRUGS (11)
  1. CAYSTON [Suspect]
     Indication: CYSTIC FIBROSIS
  2. PULMOZYME [Concomitant]
  3. FLONASE [Concomitant]
  4. ADVAIR [Concomitant]
  5. ALBUTEROL [Concomitant]
     Indication: CYSTIC FIBROSIS
  6. CLARITIN [Concomitant]
  7. AZITHROMYCIN [Concomitant]
     Indication: CYSTIC FIBROSIS
  8. ZENPEP [Concomitant]
  9. PRILOSEC [Concomitant]
  10. AQUADEKS [Concomitant]
     Indication: CYSTIC FIBROSIS
  11. VIT D3 [Concomitant]
     Indication: CYSTIC FIBROSIS

REACTIONS (1)
  - GYNAECOMASTIA [None]
